FAERS Safety Report 9596157 (Version 3)
Quarter: 2013Q4

REPORT INFORMATION
  Report Type: Spontaneous
  Country: FI (occurrence: FI)
  Receive Date: 20131004
  Receipt Date: 20131203
  Transmission Date: 20140711
  Serious: Yes (Hospitalization, Disabling, Other)
  Sender: FDA-Public Use
  Company Number: PHHY2013FI110438

PATIENT
  Age: 34 Year
  Sex: Male

DRUGS (3)
  1. GILENYA [Suspect]
     Indication: MULTIPLE SCLEROSIS
     Dosage: 0.5 MG, QD
     Route: 048
     Dates: start: 20130206
  2. SUBUTEX [Concomitant]
     Dosage: 16 MG, QD
  3. MIRTAZAPIN [Concomitant]
     Indication: INSOMNIA
     Dosage: 15 MG, UNK
     Route: 048

REACTIONS (22)
  - Hypokinesia [Not Recovered/Not Resolved]
  - Arterial spasm [Not Recovered/Not Resolved]
  - Hypoaesthesia [Not Recovered/Not Resolved]
  - Local swelling [Not Recovered/Not Resolved]
  - Muscle necrosis [Not Recovered/Not Resolved]
  - Compartment syndrome [Not Recovered/Not Resolved]
  - Raynaud^s phenomenon [Unknown]
  - Rhabdomyolysis [Not Recovered/Not Resolved]
  - Blood creatine phosphokinase increased [Unknown]
  - Myoglobin blood increased [Unknown]
  - Pyrexia [Unknown]
  - C-reactive protein increased [Unknown]
  - Blood creatinine increased [Unknown]
  - Atelectasis [Unknown]
  - Pleural effusion [Unknown]
  - Pulmonary embolism [Unknown]
  - Central nervous system lesion [Unknown]
  - Phantom pain [Unknown]
  - High density lipoprotein decreased [Unknown]
  - Visual impairment [Unknown]
  - Optic neuritis [Unknown]
  - Lymphocyte count decreased [Unknown]
